FAERS Safety Report 7794950-6 (Version None)
Quarter: 2011Q4

REPORT INFORMATION
  Report Type: 
  Country: None (occurrence: None)
  Receive Date: 20111004
  Receipt Date: 20110928
  Transmission Date: 20120403
  Serious: Yes (Hospitalization)
  Sender: FDA-Public Use
  Company Number: NL-ROCHE-767725

PATIENT
  Sex: Female
  Weight: 64 kg

DRUGS (9)
  1. DOXORUBICIN HCL [Suspect]
     Indication: DIFFUSE LARGE B-CELL LYMPHOMA
     Dosage: PERMANENTLY DISCONTINUED AFTER 7 CYCLES. DATE OF LAST DOSE: 19 JAN 2011
     Route: 042
     Dates: start: 20110119, end: 20110119
  2. DIOVAN [Concomitant]
     Indication: HYPERTENSION
     Route: 048
     Dates: start: 20101124, end: 20110127
  3. MABTHERA [Suspect]
     Indication: DIFFUSE LARGE B-CELL LYMPHOMA
     Dosage: PERMANENTLY DISCONTINUED AFTER 7 CYCLES. DATE OF LAST DOSE: 19 JANUARY 2011
     Route: 042
     Dates: start: 20110119, end: 20110119
  4. FILGRASTIM [Suspect]
     Indication: DIFFUSE LARGE B-CELL LYMPHOMA
     Dosage: PERMANENTLY DISCONTINUED AFTER 7 CYCLES. DATE OF LAST DOSE 20 JANUARY 2011.
     Route: 058
     Dates: start: 20110120, end: 20110120
  5. AMLODIPINE [Concomitant]
     Indication: HYPERTENSION
     Route: 048
     Dates: start: 20101124, end: 20110127
  6. VALACYCLOVIR HYDROCHLORIDE [Concomitant]
     Indication: PROPHYLAXIS
     Dosage: DOSE: 1000
     Route: 048
     Dates: start: 20101124, end: 20110127
  7. PREDNISONE [Suspect]
     Indication: DIFFUSE LARGE B-CELL LYMPHOMA
     Dosage: PERMANENTLY DISCONTINUED AFTER 7 CYCLES. DATE OF LAST DOSE: 23 JAN 2011
     Route: 042
     Dates: start: 20110119, end: 20110123
  8. CYCLOPHOSPHAMIDE [Suspect]
     Indication: DIFFUSE LARGE B-CELL LYMPHOMA
     Dosage: PERMANENTLY DISCONTINUED AFTER 7 CYCLES. DATE OF LAST DOSE: 19 JAN 2011
     Route: 042
     Dates: start: 20110119, end: 20110119
  9. VINCRISTINE [Suspect]
     Indication: DIFFUSE LARGE B-CELL LYMPHOMA
     Dosage: PERMANENTLY DISCONTINUED AFTER 7 CYCLES. DATE OF LAST DOSE: 19 JANUARY 2011
     Route: 042
     Dates: start: 20110119, end: 20110119

REACTIONS (1)
  - URINARY BLADDER HAEMORRHAGE [None]
